FAERS Safety Report 25396494 (Version 1)
Quarter: 2025Q2

REPORT INFORMATION
  Report Type: Spontaneous
  Country: US (occurrence: None)
  Receive Date: 20250603
  Receipt Date: 20250603
  Transmission Date: 20250716
  Serious: Yes (unspecified)
  Sender: FDA-CTU
  Company Number: None

PATIENT
  Age: 31 Year
  Sex: Female
  Weight: 63 kg

DRUGS (1)
  1. RITUXAN [Suspect]
     Active Substance: RITUXIMAB
     Indication: Autoimmune vasculitis
     Dates: start: 20240603, end: 20241219

REACTIONS (6)
  - Drug intolerance [None]
  - Vertebral artery perforation [None]
  - Vascular pseudoaneurysm [None]
  - Blister [None]
  - Impaired quality of life [None]
  - Menstruation delayed [None]

NARRATIVE: CASE EVENT DATE: 20241219
